FAERS Safety Report 9450571 (Version 3)
Quarter: 2015Q2

REPORT INFORMATION
  Report Type: Report from Study
  Country: DE (occurrence: DE)
  Receive Date: 20130809
  Receipt Date: 20150611
  Transmission Date: 20150821
  Serious: Yes (Death, Other)
  Sender: FDA-Public Use
  Company Number: DE-GLAXOSMITHKLINE-B0882400B

PATIENT
  Age: 49 Year
  Sex: Male

DRUGS (6)
  1. PAZOPANIB [Suspect]
     Active Substance: PAZOPANIB
     Indication: RENAL CELL CARCINOMA
     Route: 048
     Dates: start: 20130215, end: 20130402
  2. PALLADON [Concomitant]
     Active Substance: HYDROMORPHONE
  3. AMITRIPTYLIN [Concomitant]
     Active Substance: AMITRIPTYLINE
  4. VOMEX [Concomitant]
     Active Substance: DIMENHYDRINATE
  5. ONDANSETRON [Concomitant]
     Active Substance: ONDANSETRON
  6. NOVALGIN [Concomitant]
     Active Substance: METAMIZOLE SODIUM

REACTIONS (2)
  - Liver abscess [Fatal]
  - Septic shock [Fatal]

NARRATIVE: CASE EVENT DATE: 20130402
